FAERS Safety Report 4997083-7 (Version None)
Quarter: 2006Q2

REPORT INFORMATION
  Report Type: 
  Country: None (occurrence: None)
  Receive Date: 20060505
  Receipt Date: 20060426
  Transmission Date: 20061013
  Serious: Yes (Hospitalization)
  Sender: FDA-Public Use
  Company Number: 2006-01674

PATIENT
  Age: 77 Year
  Sex: Female

DRUGS (6)
  1. PROBENECID/COLCHICINE [Suspect]
     Indication: GOUT
     Dosage: 1 TABLET, QHS, ORAL
     Route: 048
     Dates: start: 20051001
  2. INDOMETHACIN [Suspect]
     Indication: PAIN
     Dates: start: 20051010
  3. CLONIDINE [Suspect]
     Indication: HYPERTENSION
  4. FUROSEMIDE [Concomitant]
  5. FOSAMAX [Concomitant]
  6. MULTIVITAMINS (ERGOCALCIFEROL, RETINOL, RIBOFLAVIN, NICOTINAMIDE, PANT [Concomitant]

REACTIONS (4)
  - ALOPECIA [None]
  - CARDIAC FAILURE CONGESTIVE [None]
  - FALL [None]
  - RIB FRACTURE [None]
